FAERS Safety Report 4292445-8 (Version None)
Quarter: 2004Q1

REPORT INFORMATION
  Report Type: 
  Country: None (occurrence: None)
  Receive Date: 20040126
  Receipt Date: 20030902
  Transmission Date: 20041129
  Serious: No
  Sender: FDA-Public Use
  Company Number: USA030742936

PATIENT
  Age: 72 Year
  Sex: Female
  Weight: 55 kg

DRUGS (6)
  1. FORTEO [Suspect]
     Indication: OSTEOPOROSIS
     Dosage: 20 UG/DAY
     Dates: start: 20030725, end: 20030817
  2. CALCIUM [Concomitant]
  3. MULTIVITAMIN [Concomitant]
  4. ASPIRIN [Concomitant]
  5. CLARITIN [Concomitant]
  6. IRON [Concomitant]

REACTIONS (6)
  - DIZZINESS [None]
  - HEADACHE [None]
  - HEART RATE INCREASED [None]
  - INJECTION SITE ERYTHEMA [None]
  - NAUSEA [None]
  - RASH [None]
